FAERS Safety Report 4664315-4 (Version None)
Quarter: 2005Q2

REPORT INFORMATION
  Report Type: 
  Country: None (occurrence: None)
  Receive Date: 20050518
  Receipt Date: 20050506
  Transmission Date: 20051028
  Serious: Yes (Other)
  Sender: FDA-Public Use
  Company Number: JP-BRISTOL-MYERS SQUIBB COMPANY-12965000

PATIENT
  Age: 65 Year
  Sex: Male

DRUGS (2)
  1. ENDOXAN [Suspect]
     Indication: SKIN ULCER
  2. PREDONINE [Suspect]
     Indication: SKIN ULCER

REACTIONS (1)
  - PNEUMOCYSTIS JIROVECI PNEUMONIA [None]
